FAERS Safety Report 8266138-6 (Version None)
Quarter: 2012Q2

REPORT INFORMATION
  Report Type: 
  Country: None (occurrence: None)
  Receive Date: 20120406
  Receipt Date: 20120402
  Transmission Date: 20120825
  Serious: Yes (Death, Other)
  Sender: FDA-Public Use
  Company Number: PHHY2012FR028638

PATIENT
  Age: 46 Year
  Sex: Female

DRUGS (3)
  1. FLUDARABINE PHOSPHATE [Concomitant]
     Indication: STEM CELL TRANSPLANT
     Dosage: UNK UKN, UNK
  2. MYCOPHENOLATE MOFETIL [Concomitant]
     Indication: PROPHYLAXIS AGAINST GRAFT VERSUS HOST DISEASE
     Dosage: UNK UKN, UNK
  3. CYCLOSPORINE [Suspect]
     Indication: PROPHYLAXIS AGAINST GRAFT VERSUS HOST DISEASE
     Dosage: UNK UKN, UNK

REACTIONS (11)
  - GRAFT VERSUS HOST DISEASE IN LIVER [None]
  - LIVER FUNCTION TEST ABNORMAL [None]
  - LYMPHOCYTIC INFILTRATION [None]
  - CHRONIC HEPATIC FAILURE [None]
  - HEPATIC FIBROSIS [None]
  - ASCITES [None]
  - OEDEMA [None]
  - ACUTE GRAFT VERSUS HOST DISEASE IN SKIN [None]
  - CELL DEATH [None]
  - HEPATIC CIRRHOSIS [None]
  - JAUNDICE CHOLESTATIC [None]
